FAERS Safety Report 7316628 (Version 2)
Quarter: 2013Q3

REPORT INFORMATION
  Report Type: Spontaneous
  Country: US (occurrence: US)
  Receive Date: 20100311
  Receipt Date: 20130902
  Transmission Date: 20140515
  Serious: Yes (Hospitalization)
  Sender: FDA-Public Use
  Company Number: US-BIOGENIDEC-2009BI021090

PATIENT
  Age: 51 Year
  Sex: Male
  Weight: 124 kg

DRUGS (3)
  1. AVONEX [Suspect]
     Indication: MULTIPLE SCLEROSIS
     Route: 030
     Dates: start: 2004
  2. AVONEX [Suspect]
     Indication: MULTIPLE SCLEROSIS
     Route: 030
     Dates: start: 20050907
  3. LASIX [Concomitant]
     Indication: FLUID RETENTION

REACTIONS (12)
  - Cardiac failure congestive [Not Recovered/Not Resolved]
  - Dyspnoea [Recovered/Resolved]
  - Hypertension [Recovered/Resolved]
  - Fibrin D dimer increased [Unknown]
  - Local swelling [Recovered/Resolved]
  - Arterial occlusive disease [Not Recovered/Not Resolved]
  - Gait disturbance [Not Recovered/Not Resolved]
  - Fall [Recovered/Resolved]
  - Rotator cuff syndrome [Not Recovered/Not Resolved]
  - Fractured coccyx [Recovered/Resolved]
  - Cardiomyopathy [Not Recovered/Not Resolved]
  - Muscular weakness [Not Recovered/Not Resolved]
